FAERS Safety Report 6369309-9 (Version None)
Quarter: 2009Q3

REPORT INFORMATION
  Report Type: 
  Country: None (occurrence: None)
  Receive Date: 20090916
  Receipt Date: 20090907
  Transmission Date: 20100115
  Serious: Yes (Other)
  Sender: FDA-Public Use
  Company Number: TIF2009A00069

PATIENT
  Age: 72 Year
  Sex: Female

DRUGS (3)
  1. LANSOPRAZOLE [Suspect]
     Indication: PROPHYLAXIS AGAINST GASTROINTESTINAL ULCER
     Dosage: 15 MG (15 MG, 1 IN 1 D) ORAL
     Route: 048
     Dates: start: 20090627, end: 20090629
  2. CARDIOASPIRINA (ACETYLSALICYLIC ACID) [Concomitant]
  3. CRESTOR [Concomitant]

REACTIONS (3)
  - ANURIA [None]
  - HEADACHE [None]
  - VERTIGO [None]
